FAERS Safety Report 5340382-X (Version None)
Quarter: 2007Q2

REPORT INFORMATION
  Report Type: 
  Country: None (occurrence: None)
  Receive Date: 20070531
  Receipt Date: 20070525
  Transmission Date: 20071010
  Serious: No
  Sender: FDA-Public Use
  Company Number: IT-SANOFI-SYNTHELABO-A06200600279

PATIENT
  Age: 66 Year
  Sex: Male

DRUGS (2)
  1. GEMCITABINA [Concomitant]
     Indication: PANCREATIC CARCINOMA
     Dosage: UNK
     Route: 042
     Dates: start: 20060701, end: 20060701
  2. ELOXATIN [Suspect]
     Indication: PANCREATIC CARCINOMA
     Dosage: UNK
     Route: 041
     Dates: start: 20060701, end: 20060701

REACTIONS (2)
  - CHILLS [None]
  - HYPOTENSION [None]
